FAERS Safety Report 8969655 (Version 1)
Quarter: 2012Q4

REPORT INFORMATION
  Report Type: 
  Country: US (occurrence: US)
  Receive Date: 20121218
  Receipt Date: 20121218
  Transmission Date: 20130627
  Serious: Yes (Other)
  Sender: FDA-Public Use
  Company Number: US-BRISTOL-MYERS SQUIBB COMPANY-16231946

PATIENT
  Age: 54 Year
  Sex: Female

DRUGS (2)
  1. ABILIFY [Suspect]
  2. NAPROXEN [Concomitant]

REACTIONS (4)
  - Akathisia [Unknown]
  - Malaise [Unknown]
  - Influenza like illness [Unknown]
  - Pain [Unknown]
